FAERS Safety Report 12370641 (Version 2)
Quarter: 2016Q3

REPORT INFORMATION
  Report Type: Report from Study
  Country: VE (occurrence: VE)
  Receive Date: 20160516
  Receipt Date: 20160701
  Transmission Date: 20161109
  Serious: Yes (Other)
  Sender: FDA-Public Use
  Company Number: VE-ABBVIE-16K-178-1628711-00

PATIENT
  Age: 39 Year
  Sex: Female
  Weight: 74 kg

DRUGS (2)
  1. HUMIRA [Suspect]
     Active Substance: ADALIMUMAB
     Indication: PSORIASIS
     Route: 058
     Dates: start: 2009, end: 20160408
  2. HUMIRA [Suspect]
     Active Substance: ADALIMUMAB
     Route: 058
     Dates: start: 2016

REACTIONS (1)
  - Uterine leiomyoma [Not Recovered/Not Resolved]

NARRATIVE: CASE EVENT DATE: 201604
